FAERS Safety Report 19865180 (Version 1)
Quarter: 2021Q3

REPORT INFORMATION
  Report Type: Spontaneous
  Country: ES (occurrence: ES)
  Receive Date: 20210922
  Receipt Date: 20210922
  Transmission Date: 20211014
  Serious: Yes (Other)
  Sender: FDA-Public Use
  Company Number: ES-BRISTOL-MYERS SQUIBB COMPANY-BMS-2021-093293

PATIENT
  Age: 19 Year
  Sex: Female

DRUGS (1)
  1. NIVOLUMAB [Suspect]
     Active Substance: NIVOLUMAB
     Dosage: 3 MILLIGRAM/KILOGRAM; Q2WK (9CYCLES)
     Route: 065
     Dates: start: 201711

REACTIONS (3)
  - Graft versus host disease in gastrointestinal tract [None]
  - Graft versus host disease in skin [Recovered/Resolved]
  - Pruritus [Unknown]
